FAERS Safety Report 21034691 (Version 1)
Quarter: 2022Q3

REPORT INFORMATION
  Report Type: Spontaneous
  Country: CA (occurrence: CA)
  Receive Date: 20220701
  Receipt Date: 20220701
  Transmission Date: 20221026
  Serious: Yes (Hospitalization)
  Sender: FDA-Public Use
  Company Number: CA-JNJFOC-20220652652

PATIENT
  Age: 35 Year
  Sex: Male
  Weight: 79 kg

DRUGS (1)
  1. REMICADE [Suspect]
     Active Substance: INFLIXIMAB
     Indication: Crohn^s disease
     Route: 041
     Dates: start: 20220422

REACTIONS (2)
  - Hepatic enzyme increased [Recovered/Resolved]
  - Infectious mononucleosis [Recovered/Resolved]

NARRATIVE: CASE EVENT DATE: 20220430
